FAERS Safety Report 6536651-8 (Version None)
Quarter: 2010Q1

REPORT INFORMATION
  Report Type: 
  Country: None (occurrence: None)
  Receive Date: 20100106
  Receipt Date: 20091223
  Transmission Date: 20100710
  Serious: Yes (Hospitalization)
  Sender: FDA-Public Use
  Company Number: 200912IM000862

PATIENT
  Age: 59 Year
  Sex: Female

DRUGS (9)
  1. IMMUKIN [Suspect]
     Indication: MYCOSIS FUNGOIDES
  2. PREDNISONE [Suspect]
     Indication: MYCOSIS FUNGOIDES
     Dosage: 30 MG, DAILY, 15 MG, DAILY
  3. CORTICOSTEROIDS [Suspect]
     Indication: MYCOSIS FUNGOIDES
  4. IMMU-G [Suspect]
     Indication: PEMPHIGOID
     Dosage: 200 MG/KG, 3 DAYS PER MONTH, INTRAVENOUS
     Route: 042
  5. VORINOSTAT [Suspect]
     Indication: PEMPHIGOID
     Dosage: 400 MG, DAILY, ORAL, 300 MG, 5 DAYS A WEEK, ORAL, 200 MG, DAILY, ORAL
     Route: 048
  6. FUROSEMIDE [Suspect]
     Indication: OEDEMA PERIPHERAL
  7. ANTINEOPLASTIC AGENTS [Suspect]
     Indication: MYCOSIS FUNGOIDES
     Dosage: TOPICAL
     Route: 061
  8. BEXAROTENE [Suspect]
     Indication: MYCOSIS FUNGOIDES
     Dosage: ORAL
     Route: 048
  9. ONTAK [Suspect]
     Indication: MYCOSIS FUNGOIDES

REACTIONS (8)
  - DERMATITIS EXFOLIATIVE [None]
  - DISEASE PROGRESSION [None]
  - DRUG HYPERSENSITIVITY [None]
  - ERYTHEMA MULTIFORME [None]
  - HERPES VIRUS INFECTION [None]
  - PEMPHIGOID [None]
  - STEVENS-JOHNSON SYNDROME [None]
  - THROMBOCYTOPENIA [None]
